FAERS Safety Report 7424680-1 (Version None)
Quarter: 2011Q2

REPORT INFORMATION
  Report Type: 
  Country: None (occurrence: None)
  Receive Date: 20110419
  Receipt Date: 20110228
  Transmission Date: 20111010
  Serious: Yes (Hospitalization, Other)
  Sender: FDA-Public Use
  Company Number: US-BAYER-201034478NA

PATIENT
  Sex: Female
  Weight: 64.853 kg

DRUGS (6)
  1. CLARITIN [Concomitant]
     Dosage: 10 MG, QD
  2. RESTORIL [Concomitant]
     Indication: MENSTRUATION IRREGULAR
     Dosage: UNK
  3. ORTHO TRI-CYCLEN [Concomitant]
     Indication: CONTRACEPTION
     Dosage: UNK
     Dates: start: 20040401, end: 20060101
  4. YAZ [Suspect]
     Indication: PRODUCT USED FOR UNKNOWN INDICATION
     Dosage: 1 TAB DAILY
     Route: 048
     Dates: start: 20060101, end: 20100101
  5. ORTHO TRI-CYCLEN [Concomitant]
     Dosage: UNK
     Dates: start: 20100101
  6. KEPPRA [Concomitant]
     Dosage: 500 MG, BID

REACTIONS (6)
  - CHOLELITHIASIS [None]
  - NAUSEA [None]
  - ABDOMINAL TENDERNESS [None]
  - ABDOMINAL PAIN UPPER [None]
  - CHOLECYSTITIS CHRONIC [None]
  - BACK PAIN [None]
